FAERS Safety Report 9049391 (Version 2)
Quarter: 2013Q1

REPORT INFORMATION
  Report Type: Spontaneous
  Country: US (occurrence: US)
  Receive Date: 20130205
  Receipt Date: 20130326
  Transmission Date: 20140127
  Serious: No
  Sender: FDA-Public Use
  Company Number: US-PFIZER INC-2013044046

PATIENT
  Age: 64 Year
  Sex: Male
  Weight: 42.18 kg

DRUGS (6)
  1. SUTENT [Suspect]
     Indication: METASTATIC RENAL CELL CARCINOMA
     Dosage: 50 MG  X 28 DAYS THEN 14 DAYS OFF
     Route: 048
     Dates: start: 201210
  2. PROCRIT [Concomitant]
     Indication: ANAEMIA
     Dosage: UNK, AS NEEDED
     Dates: start: 201209
  3. PROCRIT [Concomitant]
     Indication: RED BLOOD CELL COUNT DECREASED
  4. OXYCODONE [Concomitant]
     Indication: PAIN
     Dosage: 7.5 MG, AS NEEDED
  5. OXYCODONE [Concomitant]
     Indication: FLANK PAIN
  6. LISINOPRIL W/HYDROCHLOROTHIAZIDE [Concomitant]
     Dosage: 20/25MG

REACTIONS (8)
  - Drug dose omission [Unknown]
  - Dry skin [Unknown]
  - Skin exfoliation [Unknown]
  - Dyspnoea [Unknown]
  - Dysgeusia [Unknown]
  - Nausea [Unknown]
  - Fatigue [Unknown]
  - Glossodynia [Recovering/Resolving]
